FAERS Safety Report 7335443-X (Version None)
Quarter: 2011Q1

REPORT INFORMATION
  Report Type: 
  Country: None (occurrence: None)
  Receive Date: 20110307
  Receipt Date: 20110304
  Transmission Date: 20110831
  Serious: Yes (Hospitalization)
  Sender: FDA-Public Use
  Company Number: GB-BRISTOL-MYERS SQUIBB COMPANY-15575525

PATIENT
  Age: 36 Year
  Sex: Female

DRUGS (9)
  1. METHOTREXATE [Suspect]
     Indication: OVARIAN NEOPLASM
  2. CISPLATIN [Suspect]
     Indication: OVARIAN NEOPLASM
  3. ETOPOSIDE [Suspect]
     Indication: OVARIAN NEOPLASM
  4. CYCLOPHOSPHAMIDE [Suspect]
     Indication: OVARIAN NEOPLASM
  5. VINCRISTINE [Suspect]
     Indication: OVARIAN NEOPLASM
  6. DACTINOMYCIN [Suspect]
     Indication: OVARIAN NEOPLASM
  7. BLEOMYCIN SULFATE [Suspect]
     Indication: OVARIAN NEOPLASM
  8. DEXAMETHASONE [Concomitant]
     Indication: ANTIEMETIC SUPPORTIVE CARE
  9. ONDANSETRON [Concomitant]
     Indication: ANTIEMETIC SUPPORTIVE CARE

REACTIONS (5)
  - NEUTROPENIA [None]
  - BLOOD HUMAN CHORIONIC GONADOTROPIN INCREASED [None]
  - NEUTROPENIC SEPSIS [None]
  - HYPOKALAEMIA [None]
  - TUBERCULOSIS OF CENTRAL NERVOUS SYSTEM [None]
